FAERS Safety Report 5953640-2 (Version None)
Quarter: 2008Q4

REPORT INFORMATION
  Report Type: 
  Country: None (occurrence: None)
  Receive Date: 20081114
  Receipt Date: 20081031
  Transmission Date: 20090506
  Serious: Yes (Other)
  Sender: FDA-Public Use
  Company Number: B0545234A

PATIENT
  Age: 38 Year
  Sex: Male

DRUGS (1)
  1. TRIZIVIR [Suspect]
     Indication: HIV INFECTION
     Route: 065
     Dates: start: 20060114, end: 20060506

REACTIONS (2)
  - MITOCHONDRIAL CYTOPATHY [None]
  - MYOSITIS [None]
